FAERS Safety Report 6202161-0 (Version None)
Quarter: 2009Q2

REPORT INFORMATION
  Report Type: 
  Country: None (occurrence: None)
  Receive Date: 20090526
  Receipt Date: 20090514
  Transmission Date: 20091009
  Serious: Yes (Hospitalization)
  Sender: FDA-Public Use
  Company Number: FR-ELI_LILLY_AND_COMPANY-FR200905002686

PATIENT
  Age: 67 Year
  Sex: Male

DRUGS (4)
  1. GEMZAR [Suspect]
     Indication: BRONCHIAL CARCINOMA
     Dosage: 1000 MG/M2, DAY 1 AND DAY 8 EVERY 3 WEEKS
     Route: 042
     Dates: start: 20080201
  2. CISPLATIN [Concomitant]
     Indication: BRONCHIAL CARCINOMA
     Dosage: 126 MG, DAY 1 EVERY 3 WEEKS
     Dates: start: 20080201, end: 20080222
  3. CARBOPLATIN [Concomitant]
     Indication: BRONCHIAL CARCINOMA
     Dosage: 610 MG, DAY 1 EVERY 3 WEEKS
     Route: 042
     Dates: start: 20080314
  4. AVASTIN [Concomitant]
     Indication: BRONCHIAL CARCINOMA
     Dosage: 15 MG/KG, DAY 1 EVERY 3 WEEKS
     Route: 042
     Dates: start: 20080201

REACTIONS (1)
  - POLYNEUROPATHY [None]
